FAERS Safety Report 15300791 (Version 2)
Quarter: 2018Q3

REPORT INFORMATION
  Report Type: Spontaneous
  Country: US (occurrence: US)
  Receive Date: 20180821
  Receipt Date: 20180903
  Transmission Date: 20181010
  Serious: No
  Sender: FDA-Public Use
  Company Number: US-PFIZER INC-2018332912

PATIENT
  Sex: Male

DRUGS (1)
  1. METHOTREXATE SODIUM. [Suspect]
     Active Substance: METHOTREXATE SODIUM
     Dosage: UNK
     Dates: start: 2006, end: 2007

REACTIONS (4)
  - Contraindicated product administered [Unknown]
  - Drug ineffective [Unknown]
  - Drug hypersensitivity [Unknown]
  - Rash [Unknown]
